FAERS Safety Report 8373900-8 (Version None)
Quarter: 2012Q2

REPORT INFORMATION
  Report Type: 
  Country: None (occurrence: None)
  Receive Date: 20120521
  Receipt Date: 20120511
  Transmission Date: 20120825
  Serious: Yes (Hospitalization)
  Sender: FDA-Public Use
  Company Number: US-ASTRAZENECA-2012SE31080

PATIENT
  Age: 63 Year
  Sex: Male

DRUGS (14)
  1. CRESTOR [Suspect]
     Indication: SEPSIS
     Route: 048
     Dates: start: 20120419, end: 20120419
  2. DAPTOMYCIN [Suspect]
     Dates: start: 20120430, end: 20120502
  3. LEVLBUTEROL [Concomitant]
     Dates: start: 20120429, end: 20120504
  4. ALBUMIN (HUMAN) [Concomitant]
     Dates: start: 20120430, end: 20120504
  5. FLAGYL [Concomitant]
     Dates: start: 20120430, end: 20120501
  6. DIURIL [Concomitant]
     Dates: start: 20120430
  7. CRESTOR [Suspect]
     Route: 048
     Dates: start: 20120420, end: 20120501
  8. FERROUS SULFATE AND FOLIC ACID [Concomitant]
     Dates: start: 20120430, end: 20120504
  9. LEVOFLOXACIN [Concomitant]
     Dates: start: 20120429, end: 20120501
  10. MEROPENEM [Concomitant]
     Dates: start: 20120429, end: 20120504
  11. CASOFUNGIN [Concomitant]
     Dates: start: 20120430, end: 20120503
  12. VANCOMYCIN [Concomitant]
     Dates: start: 20120430, end: 20120503
  13. LACTULOSE [Concomitant]
     Dates: start: 20120429, end: 20120504
  14. ATROVENT [Concomitant]
     Dates: start: 20120430, end: 20120504

REACTIONS (4)
  - RHABDOMYOLYSIS [None]
  - ASPARTATE AMINOTRANSFERASE INCREASED [None]
  - DRUG INTERACTION [None]
  - BLOOD CREATINE PHOSPHOKINASE INCREASED [None]
